FAERS Safety Report 21197156 (Version 1)
Quarter: 2022Q3

REPORT INFORMATION
  Report Type: Spontaneous
  Country: FR (occurrence: FR)
  Receive Date: 20220810
  Receipt Date: 20220810
  Transmission Date: 20221026
  Serious: Yes (Hospitalization, Other)
  Sender: FDA-Public Use
  Company Number: FR-CELLTRION HEALTHCARE HUNGARY KFT-2022FR011164

PATIENT

DRUGS (9)
  1. METHOTREXATE [Suspect]
     Active Substance: METHOTREXATE
     Indication: Follicular lymphoma
     Dosage: UNK (3 PATIENTS RECEIVED HIGH-DOSE, DURING INDUCTION THERAPY)
     Route: 065
  2. ETOPOSIDE [Suspect]
     Active Substance: ETOPOSIDE
     Indication: Follicular lymphoma
     Dosage: UNK (REPLACEMENT OF VINCRISTINE AS PART OF R-CHOP IN 1 PATIENT DURING INDUCTION TREATMENT)
     Route: 065
  3. PREDNISONE [Suspect]
     Active Substance: PREDNISONE
     Indication: Follicular lymphoma
     Dosage: AS PART OF R-CHOP
     Route: 065
  4. RITUXIMAB [Suspect]
     Active Substance: RITUXIMAB
     Indication: Follicular lymphoma
     Dosage: INDUCTION THERAPY, 375 MG/M2 (D1 OF CYCLE 1) (AS PART OF R-CHOP)
     Route: 042
  5. RITUXIMAB [Suspect]
     Active Substance: RITUXIMAB
     Dosage: INDUCTION THERAPY, 375 MG/M2 (D1 OF CYCLES 1-6) (AS PART OF R-CHOP)
     Route: 042
  6. VINCRISTINE [Suspect]
     Active Substance: VINCRISTINE
     Indication: Follicular lymphoma
     Dosage: UNK (AS PART OF R-CHOP)
     Route: 065
  7. CYCLOPHOSPHAMIDE [Suspect]
     Active Substance: CYCLOPHOSPHAMIDE
     Indication: Follicular lymphoma
     Dosage: AS PART OF R-CHOP
     Route: 065
  8. VINDESINE [Suspect]
     Active Substance: VINDESINE
     Indication: Follicular lymphoma
     Dosage: UNK (ONE CYCLE (RECEIVED BY TWO PATIENTS WITH R-CHOP INSTEAD OF VINCRISTINE)
     Route: 065
  9. DOXORUBICIN [Suspect]
     Active Substance: DOXORUBICIN
     Indication: Follicular lymphoma
     Dosage: AS PART OF R-CHOP
     Route: 065

REACTIONS (20)
  - Hypokalaemia [Unknown]
  - Large intestinal stenosis [Unknown]
  - Infusion related reaction [Unknown]
  - Cardiotoxicity [Unknown]
  - Cardiogenic shock [Unknown]
  - Blood glucose abnormal [Unknown]
  - General physical condition abnormal [Unknown]
  - Angiopathy [Unknown]
  - Abdominal pain [Unknown]
  - Haematotoxicity [Unknown]
  - Skin toxicity [Unknown]
  - COVID-19 [Unknown]
  - Infection [Unknown]
  - Pulmonary toxicity [Unknown]
  - Hepatitis B reactivation [Unknown]
  - Diarrhoea [Unknown]
  - Pyrexia [Unknown]
  - Disease progression [Unknown]
  - Disease recurrence [Unknown]
  - Therapy partial responder [Unknown]
